FAERS Safety Report 4919842-9 (Version None)
Quarter: 2006Q1

REPORT INFORMATION
  Report Type: 
  Country: None (occurrence: None)
  Receive Date: 20060216
  Receipt Date: 20060131
  Transmission Date: 20060701
  Serious: Yes (Other)
  Sender: FDA-Public Use
  Company Number: JP-2006-002098

PATIENT
  Age: 44 Year
  Sex: Female

DRUGS (8)
  1. BETAFERON (INTERFERON BETA - 1B) INJECTION, 250UG [Suspect]
     Indication: RELAPSING-REMITTING MULTIPLE SCLEROSIS
     Dosage: 8 MIU, EVERY 2D, SUBCUTANEOUS
     Route: 058
     Dates: start: 20020528, end: 20050324
  2. METHYCOBAL (MECOBALAMIN) TABLET [Concomitant]
  3. CLONAZEPAM [Concomitant]
  4. UBRETID (DISTIGMINE BROMIDE) TABLET [Concomitant]
  5. LAXOBERIN (SODIUM PICOSULFATE) TABLET [Concomitant]
  6. LIORESAL TABLET [Concomitant]
  7. GASMOTIN (MOSAPRIDE CITRATE) TABLET [Concomitant]
  8. MEDROL [Concomitant]

REACTIONS (8)
  - DISEASE RECURRENCE [None]
  - ERYTHEMA MULTIFORME [None]
  - HYPOPROTEINAEMIA [None]
  - MYALGIA [None]
  - PYREXIA [None]
  - RED BLOOD CELL COUNT DECREASED [None]
  - RELAPSING-REMITTING MULTIPLE SCLEROSIS [None]
  - WHITE BLOOD CELL COUNT DECREASED [None]
